FAERS Safety Report 12204380 (Version 2)
Quarter: 2016Q1

REPORT INFORMATION
  Report Type: Report from Study
  Country: US (occurrence: US)
  Receive Date: 20160323
  Receipt Date: 20160330
  Transmission Date: 20160526
  Serious: Yes (Hospitalization, Other)
  Sender: FDA-Public Use
  Company Number: US-GILEAD-2016-0204275

PATIENT
  Age: 37 Year
  Sex: Female

DRUGS (2)
  1. ELVITEGRAVIR/EMTRICITABINE/TENOFOVIR DF/COBICISTAT [Suspect]
     Active Substance: COBICISTAT\ELVITEGRAVIR\EMTRICITABINE\TENOFOVIR
     Indication: HIV INFECTION
     Dosage: 800 MG, UNK
     Route: 048
  2. METFORMIN [Suspect]
     Active Substance: METFORMIN HYDROCHLORIDE
     Indication: PRODUCT USED FOR UNKNOWN INDICATION
     Route: 065

REACTIONS (9)
  - Infection [Unknown]
  - Diabetes mellitus inadequate control [Unknown]
  - Neutropenia [Unknown]
  - Nephropathy toxic [Unknown]
  - Furuncle [Unknown]
  - Breast abscess [Unknown]
  - Pyrexia [Unknown]
  - Blindness [Unknown]
  - Drug resistance [Unknown]
